FAERS Safety Report 8958225 (Version 1)
Quarter: 2012Q4

REPORT INFORMATION
  Report Type: 
  Country: JP (occurrence: JP)
  Receive Date: 20121211
  Receipt Date: 20121211
  Transmission Date: 20130627
  Serious: Yes (Hospitalization)
  Sender: FDA-Public Use
  Company Number: PHHY2012JP106677

PATIENT
  Age: 87 Year
  Sex: Female

DRUGS (5)
  1. RIVASTIGMINE [Suspect]
     Indication: DEMENTIA ALZHEIMER^S TYPE
     Dosage: 4.5 mg, daily
     Route: 062
     Dates: start: 201207, end: 201208
  2. RIVASTIGMINE [Suspect]
     Dosage: 9 mg, daily
     Route: 062
     Dates: start: 201208, end: 201209
  3. RIVASTIGMINE [Suspect]
     Dosage: 13.5 mg, daily
     Route: 062
     Dates: start: 201209, end: 201210
  4. RIVASTIGMINE [Suspect]
     Dosage: 18 mg, daily
     Route: 062
     Dates: start: 201210
  5. RIVASTIGMINE [Suspect]
     Dosage: 13.5 mg, Daily
     Route: 062
     Dates: start: 2012

REACTIONS (2)
  - Food poisoning [Unknown]
  - Nausea [Recovered/Resolved]
